FAERS Safety Report 4507021-9 (Version None)
Quarter: 2004Q4

REPORT INFORMATION
  Report Type: 
  Country: None (occurrence: None)
  Receive Date: 20041117
  Receipt Date: 20041110
  Transmission Date: 20050328
  Serious: Yes (Life-Threatening)
  Sender: FDA-Public Use
  Company Number: 2004AP05728

PATIENT
  Age: 79 Year
  Sex: Female

DRUGS (7)
  1. OMEPRAZOLE [Suspect]
     Dosage: 20 MG DAILY PO
     Route: 048
  2. ASASANTIN [Suspect]
     Dosage: 400 MG DAILY PO
     Route: 048
  3. CELECOXIB [Suspect]
     Dosage: 200 MG DAILY PO
     Route: 048
  4. DIGOXIN [Suspect]
     Dosage: 125 UG DAILY
     Dates: end: 20040304
  5. CARVEDILOL HYDROCHLORIDE [Suspect]
     Dosage: 12.5 MG DAILY
     Dates: end: 20040304
  6. FRUSEMIDE [Suspect]
     Dosage: 40 MG DAILY
  7. CANDESARTAN CILEXETIL [Suspect]
     Dosage: 8 MG DAILY PO
     Route: 048

REACTIONS (6)
  - BRADYCARDIA [None]
  - CARDIOACTIVE DRUG LEVEL INCREASED [None]
  - HYPOTENSION [None]
  - NAUSEA [None]
  - THERAPEUTIC AGENT TOXICITY [None]
  - VOMITING [None]
